FAERS Safety Report 6535909-6 (Version None)
Quarter: 2010Q1

REPORT INFORMATION
  Report Type: 
  Country: None (occurrence: None)
  Receive Date: 20100113
  Receipt Date: 20100104
  Transmission Date: 20100710
  Serious: Yes (Other)
  Sender: FDA-Public Use
  Company Number: DE-ABBOTT-10P-062-0617557-00

PATIENT
  Age: 66 Year
  Sex: Female

DRUGS (25)
  1. ERGENYL CHRONO TABLETS [Interacting]
     Indication: DRUG USE FOR UNKNOWN INDICATION
     Dosage: EXTENDED RELEASE
     Route: 048
     Dates: start: 20020101, end: 20060101
  2. ERGENYL CHRONO TABLETS [Interacting]
     Dosage: EXTENDED RELEASE
     Route: 048
     Dates: start: 20060101, end: 20090101
  3. ERGENYL CHRONO TABLETS [Interacting]
     Dosage: EXTENDED RELEASE
     Route: 048
     Dates: start: 20090325, end: 20090617
  4. ERGENYL CHRONO TABLETS [Interacting]
     Dosage: EXTENDED RELEASE
     Route: 048
     Dates: start: 20090618, end: 20090618
  5. ERGENYL CHRONO TABLETS [Interacting]
     Dosage: EXTENDED RELEASE
     Route: 048
     Dates: start: 20090619, end: 20090619
  6. ERGENYL CHRONO TABLETS [Interacting]
     Dosage: EXTENDED RELEASE
     Route: 048
     Dates: start: 20090620, end: 20090620
  7. ERGENYL CHRONO TABLETS [Interacting]
     Dosage: EXTENDED RELEASE
     Route: 048
     Dates: start: 20090621, end: 20090621
  8. ZOLOFT [Interacting]
     Indication: DRUG USE FOR UNKNOWN INDICATION
     Dosage: FILM COATED
     Route: 048
     Dates: start: 20090326, end: 20090407
  9. ZOLOFT [Interacting]
     Dosage: FILM COATED
     Route: 048
     Dates: start: 20090408, end: 20090423
  10. ZOLOFT [Interacting]
     Dosage: FILM COATED
     Route: 048
     Dates: start: 20090424, end: 20090426
  11. ZOLOFT [Interacting]
     Dosage: FILM COATED
     Route: 048
     Dates: start: 20090427, end: 20090511
  12. ZOLOFT [Interacting]
     Dosage: FILM COATED
     Route: 048
     Dates: start: 20090512, end: 20090612
  13. ZOLOFT [Interacting]
     Dosage: FILM COATED
     Route: 048
     Dates: start: 20090613
  14. METOPROLOL [Interacting]
     Indication: DRUG USE FOR UNKNOWN INDICATION
     Route: 048
  15. AMLODIPINE [Interacting]
     Indication: DRUG USE FOR UNKNOWN INDICATION
     Route: 048
  16. REMERGIL [Suspect]
     Indication: DRUG USE FOR UNKNOWN INDICATION
     Route: 048
     Dates: end: 20090415
  17. REMERGIL [Suspect]
     Route: 048
     Dates: start: 20090416, end: 20090430
  18. REMERGIL [Suspect]
     Route: 048
     Dates: start: 20090501, end: 20090615
  19. REMERGIL [Suspect]
     Route: 048
     Dates: start: 20090616, end: 20090616
  20. REMERGIL [Suspect]
     Route: 048
     Dates: start: 20090617, end: 20090617
  21. MARCUMAR [Concomitant]
     Indication: DRUG USE FOR UNKNOWN INDICATION
     Dates: start: 20020101
  22. L-THYROXIN [Concomitant]
     Indication: DRUG USE FOR UNKNOWN INDICATION
  23. LASIX [Concomitant]
     Indication: DRUG USE FOR UNKNOWN INDICATION
  24. ACETYLSALICYLIC ACID [Concomitant]
     Indication: DRUG USE FOR UNKNOWN INDICATION
  25. BENALAPRIL [Concomitant]
     Indication: DRUG USE FOR UNKNOWN INDICATION

REACTIONS (5)
  - BLOOD ALKALINE PHOSPHATASE INCREASED [None]
  - CHOLESTASIS [None]
  - DRUG INTERACTION [None]
  - GAMMA-GLUTAMYLTRANSFERASE INCREASED [None]
  - TRANSAMINASES INCREASED [None]
